FAERS Safety Report 8625173-6 (Version None)
Quarter: 2012Q3

REPORT INFORMATION
  Report Type: 
  Country: None (occurrence: None)
  Receive Date: 20120827
  Receipt Date: 20120820
  Transmission Date: 20120928
  Serious: Yes (Other)
  Sender: FDA-Public Use
  Company Number: US-UCBSA-063063

PATIENT
  Age: 64 Year
  Sex: Female

DRUGS (2)
  1. NEUPRO [Suspect]
     Indication: PARKINSON'S DISEASE
     Dates: start: 20120710, end: 20120724
  2. STALEVO 100 [Concomitant]

REACTIONS (1)
  - SELF-INJURIOUS IDEATION [None]
